FAERS Safety Report 11800225 (Version 1)
Quarter: 2015Q4

REPORT INFORMATION
  Report Type: Spontaneous
  Country: KR (occurrence: KR)
  Receive Date: 20151203
  Receipt Date: 20151203
  Transmission Date: 20160305
  Serious: Yes (Hospitalization)
  Sender: FDA-Public Use
  Company Number: KR-AMGEN-KORCT2015128033

PATIENT
  Age: 48 Year
  Sex: Female
  Weight: 66 kg

DRUGS (24)
  1. G-LASTA [Suspect]
     Active Substance: PEGFILGRASTIM
     Dosage: 6 MG, 1X/3WEEKS
     Route: 058
     Dates: start: 20150823
  2. DOCETAXEL. [Concomitant]
     Active Substance: DOCETAXEL
     Dosage: 129 MG, UNK
     Route: 042
     Dates: start: 20150801, end: 20150801
  3. DOXORUBICIN [Concomitant]
     Active Substance: DOXORUBICIN
     Dosage: 86 MG, UNK
     Route: 042
     Dates: start: 20150822, end: 20150822
  4. DOXORUBICIN [Concomitant]
     Active Substance: DOXORUBICIN
     Dosage: 86 MG, UNK
     Route: 042
     Dates: start: 20151114, end: 20151114
  5. G-LASTA [Suspect]
     Active Substance: PEGFILGRASTIM
     Dosage: 6 MG, 1X/3WEEKS
     Route: 058
     Dates: start: 20151025
  6. G-LASTA [Suspect]
     Active Substance: PEGFILGRASTIM
     Dosage: 6 MG, 1X/3WEEKS
     Route: 058
     Dates: start: 20150913
  7. G-LASTA [Suspect]
     Active Substance: PEGFILGRASTIM
     Dosage: 6 MG, 1X/3WEEKS
     Route: 058
     Dates: start: 20151115
  8. DOCETAXEL. [Concomitant]
     Active Substance: DOCETAXEL
     Dosage: 129 MG, UNK
     Route: 042
     Dates: start: 20151024, end: 20151024
  9. DOXORUBICIN [Concomitant]
     Active Substance: DOXORUBICIN
     Dosage: 86 MG, UNK
     Route: 042
     Dates: start: 20151024, end: 20151024
  10. CYCLOPHOSPHAMIDE. [Concomitant]
     Active Substance: CYCLOPHOSPHAMIDE
     Dosage: 865 MG, UNK
     Route: 042
     Dates: start: 20151024, end: 20151024
  11. G-LASTA [Suspect]
     Active Substance: PEGFILGRASTIM
     Indication: FEBRILE NEUTROPENIA
     Dosage: 6 MG, 1X/3WEEKS
     Route: 058
     Dates: start: 20150802
  12. DOCETAXEL. [Concomitant]
     Active Substance: DOCETAXEL
     Dosage: 129 MG, UNK
     Route: 042
     Dates: start: 20150912, end: 20150912
  13. CYCLOPHOSPHAMIDE. [Concomitant]
     Active Substance: CYCLOPHOSPHAMIDE
     Dosage: 865 MG, UNK
     Route: 042
     Dates: start: 20151114, end: 20151114
  14. G-LASTA [Suspect]
     Active Substance: PEGFILGRASTIM
     Dosage: 6 MG, 1X/3WEEKS
     Route: 058
     Dates: start: 20151004
  15. DOCETAXEL. [Concomitant]
     Active Substance: DOCETAXEL
     Dosage: 129 MG, UNK
     Route: 042
     Dates: start: 20150822, end: 20150822
  16. DOCETAXEL. [Concomitant]
     Active Substance: DOCETAXEL
     Dosage: 129 MG, UNK
     Route: 042
     Dates: start: 20151003, end: 20151003
  17. CYCLOPHOSPHAMIDE. [Concomitant]
     Active Substance: CYCLOPHOSPHAMIDE
     Dosage: 865 MG, UNK
     Route: 042
     Dates: start: 20150801, end: 20150801
  18. CYCLOPHOSPHAMIDE. [Concomitant]
     Active Substance: CYCLOPHOSPHAMIDE
     Dosage: 865 MG, UNK
     Route: 042
     Dates: start: 20150822, end: 20150822
  19. DOCETAXEL. [Concomitant]
     Active Substance: DOCETAXEL
     Dosage: 129 MG, UNK
     Route: 042
     Dates: start: 20151114, end: 20151114
  20. DOXORUBICIN [Concomitant]
     Active Substance: DOXORUBICIN
     Dosage: 86 MG, UNK
     Route: 042
     Dates: start: 20151003, end: 20151003
  21. DOXORUBICIN [Concomitant]
     Active Substance: DOXORUBICIN
     Dosage: 86 MG, UNK
     Route: 042
     Dates: start: 20150801, end: 20150801
  22. DOXORUBICIN [Concomitant]
     Active Substance: DOXORUBICIN
     Dosage: 86 MG, UNK
     Route: 042
     Dates: start: 20150912, end: 20150912
  23. CYCLOPHOSPHAMIDE. [Concomitant]
     Active Substance: CYCLOPHOSPHAMIDE
     Dosage: 865 MG, UNK
     Route: 042
     Dates: start: 20150912, end: 20150912
  24. CYCLOPHOSPHAMIDE. [Concomitant]
     Active Substance: CYCLOPHOSPHAMIDE
     Dosage: 865 MG, UNK
     Route: 042
     Dates: start: 20151003, end: 20151003

REACTIONS (1)
  - Neutropenia [Recovered/Resolved]

NARRATIVE: CASE EVENT DATE: 20151120
